FAERS Safety Report 7537399-3 (Version None)
Quarter: 2011Q2

REPORT INFORMATION
  Report Type: 
  Country: None (occurrence: None)
  Receive Date: 20110609
  Receipt Date: 20110601
  Transmission Date: 20111010
  Serious: Yes (Death, Life-Threatening, Hospitalization)
  Sender: FDA-Public Use
  Company Number: FR-SANOFI-AVENTIS-2011SA035526

PATIENT
  Age: 80 Year
  Sex: Male
  Weight: 66 kg

DRUGS (10)
  1. PLAVIX [Concomitant]
     Route: 048
     Dates: start: 20100801, end: 20110301
  2. LASIX [Concomitant]
     Route: 048
     Dates: start: 20100701, end: 20110301
  3. PERINDOPRIL ERBUMINE [Suspect]
     Route: 048
     Dates: start: 20100801, end: 20110311
  4. ACETAMINOPHEN [Suspect]
     Route: 065
     Dates: start: 20110310, end: 20110312
  5. ASPIRIN [Concomitant]
     Route: 048
     Dates: start: 20100801, end: 20110301
  6. HYDROCORTISONE [Concomitant]
     Dates: start: 20110301, end: 20110301
  7. ANTIBIOTICS [Concomitant]
     Dates: start: 20110301, end: 20110301
  8. MULTAQ [Suspect]
     Route: 048
     Dates: start: 20101001, end: 20110311
  9. ATORVASTATIN [Suspect]
     Route: 048
     Dates: end: 20110311
  10. PREVISCAN [Concomitant]
     Route: 048
     Dates: start: 20100701, end: 20110301

REACTIONS (1)
  - HEPATIC FAILURE [None]
